FAERS Safety Report 8573562 (Version 2)
Quarter: 2012Q4

REPORT INFORMATION
  Report Type: 
  Country: US (occurrence: US)
  Receive Date: 20120522
  Receipt Date: 20121219
  Transmission Date: 20130627
  Serious: Yes (Death)
  Sender: FDA-Public Use
  Company Number: US-ROCHE-1070813

PATIENT
  Sex: Male
  Weight: 71 kg

DRUGS (3)
  1. XELODA [Suspect]
     Indication: PALLIATIVE CARE
     Route: 048
     Dates: start: 20110625, end: 20110724
  2. GEMCITABINE [Concomitant]
     Indication: PALLIATIVE CARE
     Route: 065
     Dates: start: 20110625, end: 20111222
  3. TAXOTERE [Concomitant]
     Indication: PALLIATIVE CARE
     Route: 065
     Dates: start: 20110625, end: 20110724

REACTIONS (3)
  - Death [Fatal]
  - Vomiting [Unknown]
  - Drug intolerance [Unknown]
